FAERS Safety Report 8573380-3 (Version None)
Quarter: 2012Q3

REPORT INFORMATION
  Report Type: 
  Country: None (occurrence: None)
  Receive Date: 20120806
  Receipt Date: 20120803
  Transmission Date: 20120928
  Serious: Yes (Other)
  Sender: FDA-Public Use
  Company Number: US-PFIZER INC-2012189399

PATIENT
  Sex: Female

DRUGS (3)
  1. AROMASIN [Suspect]
     Dosage: UNK
     Dates: start: 20120101, end: 20120101
  2. AROMASIN [Suspect]
     Dosage: UNK
     Dates: start: 20120101, end: 20120101
  3. NORVASC [Concomitant]
     Indication: HYPERTENSION
     Dosage: UNK

REACTIONS (4)
  - DIZZINESS [None]
  - DRY SKIN [None]
  - IMPAIRED DRIVING ABILITY [None]
  - HOT FLUSH [None]
